FAERS Safety Report 23728807 (Version 2)
Quarter: 2024Q2

REPORT INFORMATION
  Report Type: Spontaneous
  Country: US (occurrence: US)
  Receive Date: 20240410
  Receipt Date: 20240518
  Transmission Date: 20240716
  Serious: No
  Sender: FDA-Public Use
  Company Number: US-ABBVIE-5711803

PATIENT
  Sex: Female
  Weight: 70.306 kg

DRUGS (7)
  1. LUMIGAN [Suspect]
     Active Substance: BIMATOPROST
     Indication: Product used for unknown indication
     Dosage: FORM STRENGTH- 0.1MG/ML?1 DROP EACH EYE NIGHTLY
     Route: 047
     Dates: start: 2016
  2. LUMIGAN [Suspect]
     Active Substance: BIMATOPROST
     Dosage: FORM STRENGTH- 0.1MG/ML?1 DROP EACH EYE NIGHTLY
     Route: 047
  3. ATORVASTATIN [Concomitant]
     Active Substance: ATORVASTATIN
     Indication: Product used for unknown indication
     Route: 048
     Dates: start: 1997
  4. FAMOTIDINE [Concomitant]
     Active Substance: FAMOTIDINE
     Indication: Product used for unknown indication
     Dates: start: 202302
  5. CALCIUM [Concomitant]
     Active Substance: CALCIUM
     Indication: Product used for unknown indication
  6. OMEPRAZOLE [Concomitant]
     Active Substance: DONEPEZIL HYDROCHLORIDE\OMEPRAZOLE\OMEPRAZOLE MAGNESIUM
     Indication: Product used for unknown indication
     Dates: start: 20240317
  7. VITAMIN D [Concomitant]
     Active Substance: VITAMIN D NOS
     Indication: Product used for unknown indication

REACTIONS (5)
  - Prescription drug used without a prescription [Unknown]
  - Eye irritation [Recovered/Resolved]
  - Gastrooesophageal reflux disease [Unknown]
  - Eye pruritus [Unknown]
  - Eye irritation [Recovered/Resolved]
